FAERS Safety Report 9288830 (Version 1)
Quarter: 2013Q2

REPORT INFORMATION
  Report Type: Spontaneous
  Country: US (occurrence: US)
  Receive Date: 20130514
  Receipt Date: 20130514
  Transmission Date: 20140414
  Serious: Yes (Hospitalization)
  Sender: FDA-Public Use
  Company Number: US-BAYER-2013-057792

PATIENT
  Age: 45 Year
  Sex: Female

DRUGS (9)
  1. YAZ [Suspect]
     Indication: MENSTRUATION IRREGULAR
  2. PYRIDIUM [Concomitant]
     Dosage: 200 MG, UNK
  3. CIPROFLOXACIN [Concomitant]
     Dosage: 500 MG, UNK
  4. NORCO [Concomitant]
  5. LEXAPRO [Concomitant]
  6. MORPHIN [Concomitant]
  7. COLACE [Concomitant]
  8. VICODIN [Concomitant]
     Indication: PAIN
  9. NAPROXEN [Concomitant]
     Indication: PAIN

REACTIONS (1)
  - Deep vein thrombosis [None]
